FAERS Safety Report 9456562 (Version 1)
Quarter: 2013Q3

REPORT INFORMATION
  Report Type: Report from Study
  Country: CA (occurrence: CA)
  Receive Date: 20130813
  Receipt Date: 20130813
  Transmission Date: 20140515
  Serious: Yes (Hospitalization)
  Sender: FDA-Public Use
  Company Number: CA-GLAXOSMITHKLINE-A1037379A

PATIENT
  Age: 9 Year
  Sex: Male
  Weight: 39.9 kg

DRUGS (11)
  1. NELARABINE [Suspect]
     Indication: T-CELL TYPE ACUTE LEUKAEMIA
     Dosage: 650MGM2 CYCLIC
     Route: 042
     Dates: start: 20130705, end: 20130709
  2. METHOTREXATE [Suspect]
     Indication: T-CELL TYPE ACUTE LEUKAEMIA
     Route: 037
     Dates: end: 20130725
  3. CYCLOPHOSPHAMIDE [Suspect]
     Indication: T-CELL TYPE ACUTE LEUKAEMIA
     Dosage: 1000MGM2 CYCLIC
     Route: 042
     Dates: end: 20130712
  4. CYTARABINE [Suspect]
     Indication: T-CELL TYPE ACUTE LEUKAEMIA
     Dosage: 75MGM2 CYCLIC
     Dates: end: 20130721
  5. MERCAPTOPURINE [Suspect]
     Indication: T-CELL TYPE ACUTE LEUKAEMIA
     Dosage: 60MGM2 CYCLIC
     Route: 048
     Dates: end: 20130724
  6. VINCRISTINE [Suspect]
     Indication: T-CELL TYPE ACUTE LEUKAEMIA
     Dosage: 1.5MGM2 CYCLIC
     Route: 042
     Dates: end: 20130725
  7. PEG-ASPARAGINASE [Suspect]
     Indication: T-CELL TYPE ACUTE LEUKAEMIA
     Route: 030
     Dates: end: 20130725
  8. MORPHINE [Concomitant]
  9. ONDANSETRON [Concomitant]
  10. POLYETHYLENE GLYCOL [Concomitant]
  11. SEPTRA [Concomitant]

REACTIONS (3)
  - Ataxia [Recovered/Resolved]
  - Dysarthria [Recovered/Resolved]
  - Facial paresis [Recovered/Resolved]
